FAERS Safety Report 6420919-X (Version None)
Quarter: 2009Q4

REPORT INFORMATION
  Report Type: 
  Country: None (occurrence: None)
  Receive Date: 20091030
  Receipt Date: 20091023
  Transmission Date: 20100525
  Serious: Yes (Other)
  Sender: FDA-Public Use
  Company Number: GB-ASTRAZENECA-2009SE22303

PATIENT
  Age: 70 Year
  Sex: Male

DRUGS (5)
  1. LISINOPRIL [Suspect]
     Route: 048
  2. ATORVASTATIN [Concomitant]
  3. AZATHIOPRINE [Concomitant]
  4. IRBESARTAN [Concomitant]
  5. PREDNISOLONE [Concomitant]

REACTIONS (1)
  - ACUTE MYOCARDIAL INFARCTION [None]
